FAERS Safety Report 10404753 (Version 1)
Quarter: 2014Q3

REPORT INFORMATION
  Report Type: Spontaneous
  Country: CN (occurrence: CN)
  Receive Date: 20140825
  Receipt Date: 20140825
  Transmission Date: 20150326
  Serious: Yes (Other)
  Sender: FDA-Public Use
  Company Number: PHHY2014CN104086

PATIENT
  Age: 15 Year
  Sex: Male

DRUGS (1)
  1. TRIAMCINOLONE [Suspect]
     Active Substance: TRIAMCINOLONE
     Indication: VITILIGO
     Dosage: 40 MG/ML, (1 ML)
     Route: 058

REACTIONS (13)
  - Macular oedema [Unknown]
  - Blindness [Not Recovered/Not Resolved]
  - Retinal oedema [Unknown]
  - Cerebral infarction [Unknown]
  - Dizziness [Unknown]
  - Visual impairment [Not Recovered/Not Resolved]
  - Vision blurred [Not Recovered/Not Resolved]
  - Retinal artery occlusion [Unknown]
  - Pupillary reflex impaired [Unknown]
  - Ocular hyperaemia [Unknown]
  - Retinal haemorrhage [Unknown]
  - Retinal vascular disorder [Unknown]
  - Vertigo [Recovered/Resolved]
